FAERS Safety Report 5406380-2 (Version None)
Quarter: 2007Q3

REPORT INFORMATION
  Report Type: 
  Country: None (occurrence: None)
  Receive Date: 20070713
  Receipt Date: 20070410
  Transmission Date: 20080115
  Serious: Yes (Hospitalization, Other)
  Sender: FDA-Public Use
  Company Number: US-JNJFOC-20060806206

PATIENT
  Age: 46 Year
  Sex: Female
  Weight: 93.5317 kg

DRUGS (5)
  1. ORTHO EVRA [Suspect]
     Indication: DRUG USE FOR UNKNOWN INDICATION
     Dates: start: 20040501, end: 20040801
  2. VIOXX [Concomitant]
  3. LEVOXYL [Concomitant]
  4. PROZAC [Concomitant]
  5. PROTONIX [Concomitant]

REACTIONS (4)
  - METRORRHAGIA [None]
  - OEDEMA PERIPHERAL [None]
  - PAIN IN EXTREMITY [None]
  - PULMONARY EMBOLISM [None]
